FAERS Safety Report 7514759-8 (Version None)
Quarter: 2011Q2

REPORT INFORMATION
  Report Type: 
  Country: None (occurrence: None)
  Receive Date: 20110601
  Receipt Date: 20110526
  Transmission Date: 20111010
  Serious: Yes (Other)
  Sender: FDA-Public Use
  Company Number: US-AMGEN-USASP2010001210

PATIENT
  Age: 35 Year
  Sex: Female
  Weight: 70.295 kg

DRUGS (5)
  1. AVASTIN [Concomitant]
     Dosage: UNK
     Dates: start: 20090518, end: 20101028
  2. NPLATE [Suspect]
     Indication: IDIOPATHIC THROMBOCYTOPENIC PURPURA
     Dosage: 2 A?G/KG, UNK
     Dates: start: 20100420, end: 20101001
  3. CISPLATIN [Concomitant]
  4. GEMCITABINE [Concomitant]
  5. CARBOPLATIN [Concomitant]

REACTIONS (3)
  - DRUG INEFFECTIVE [None]
  - PLATELET COUNT DECREASED [None]
  - THROMBOCYTOPENIA [None]
